FAERS Safety Report 5476764-5 (Version None)
Quarter: 2007Q4

REPORT INFORMATION
  Report Type: 
  Country: None (occurrence: None)
  Receive Date: 20071004
  Receipt Date: 20070926
  Transmission Date: 20080405
  Serious: Yes (Hospitalization)
  Sender: FDA-Public Use
  Company Number: FR-JNJFOC-20070905800

PATIENT
  Age: 67 Year
  Sex: Female

DRUGS (4)
  1. CAELYX [Suspect]
     Indication: OVARIAN CANCER
     Route: 042
  2. CARBOPLATIN [Suspect]
     Indication: OVARIAN CANCER
     Route: 042
  3. LASIX [Concomitant]
     Indication: HYPERTENSION
     Route: 048
  4. EUPRESSYL [Concomitant]
     Indication: HYPERTENSION
     Route: 048

REACTIONS (3)
  - RENAL FAILURE ACUTE [None]
  - THROMBOCYTOPENIA [None]
  - THROMBOTIC MICROANGIOPATHY [None]
